FAERS Safety Report 13112548 (Version 1)
Quarter: 2017Q1

REPORT INFORMATION
  Report Type: Other
  Country: ES (occurrence: ES)
  Receive Date: 20170113
  Receipt Date: 20170113
  Transmission Date: 20170428
  Serious: Yes (Hospitalization)
  Sender: FDA-Public Use
  Company Number: ES-NOVEL LABORATORIES, INC-2017-00183

PATIENT
  Age: 52 Year
  Sex: Male
  Weight: 108 kg

DRUGS (15)
  1. IBUPROFEN. [Concomitant]
     Active Substance: IBUPROFEN
     Indication: PAIN IN EXTREMITY
     Dosage: IN THE MORNING, AT LUNCH, AND IN THE EVENING
     Route: 048
  2. INSULIN LISPRO PROTAMINE [Concomitant]
     Active Substance: INSULIN LISPRO
     Indication: PRODUCT USED FOR UNKNOWN INDICATION
     Dosage: 15 UNITS IN THE MORNING, 17 UNITS AT LUNCH, AND 5 UNITS IN THE EVENING
     Route: 058
  3. PREGABALIN. [Concomitant]
     Active Substance: PREGABALIN
     Indication: PAIN
     Route: 048
  4. ESCITALOPRAM [Concomitant]
     Active Substance: ESCITALOPRAM OXALATE
     Indication: PRODUCT USED FOR UNKNOWN INDICATION
     Route: 048
  5. ZOLPIDEM [Concomitant]
     Active Substance: ZOLPIDEM\ZOLPIDEM TARTRATE
     Indication: PRODUCT USED FOR UNKNOWN INDICATION
     Route: 048
  6. LOSARTAN. [Concomitant]
     Active Substance: LOSARTAN
     Indication: PRODUCT USED FOR UNKNOWN INDICATION
     Route: 048
  7. TELMISARTAN. [Concomitant]
     Active Substance: TELMISARTAN
     Indication: PRODUCT USED FOR UNKNOWN INDICATION
     Route: 048
  8. TRABECTEDIN [Concomitant]
     Active Substance: TRABECTEDIN
     Indication: LIPOSARCOMA METASTATIC
     Dosage: 1.25 MG/M^2 (TOTAL DOSE OF 3 MG) GIVEN AS A 24-HOUR CONTINUOUS INFUSION EVERY THREE WEEKS
     Route: 065
  9. MORPHINE SULFATE. [Suspect]
     Active Substance: MORPHINE SULFATE
     Route: 048
  10. LACTULOSE. [Concomitant]
     Active Substance: LACTULOSE
     Indication: CONSTIPATION
     Route: 048
  11. BEMIPARIN SODIUM [Concomitant]
     Active Substance: BEMIPARIN SODIUM
     Indication: PRODUCT USED FOR UNKNOWN INDICATION
     Route: 058
  12. MORPHINE SULFATE. [Suspect]
     Active Substance: MORPHINE SULFATE
     Indication: PAIN IN EXTREMITY
     Route: 048
  13. MORPHINE SULFATE. [Suspect]
     Active Substance: MORPHINE SULFATE
     Route: 048
  14. MORPHINE SULFATE. [Suspect]
     Active Substance: MORPHINE SULFATE
     Route: 048
  15. ACETAMINOPHEN. [Concomitant]
     Active Substance: ACETAMINOPHEN
     Indication: PAIN
     Route: 048

REACTIONS (10)
  - Lymphoedema [Unknown]
  - Oedema [Unknown]
  - Hypoventilation [Unknown]
  - Hypotension [Unknown]
  - Cyanosis [Unknown]
  - Pyrexia [Unknown]
  - Deafness [Recovering/Resolving]
  - Coma scale abnormal [Unknown]
  - Overdose [Unknown]
  - Tinnitus [Recovering/Resolving]
